FAERS Safety Report 14595396 (Version 1)
Quarter: 2018Q1

REPORT INFORMATION
  Report Type: Spontaneous
  Country: US (occurrence: US)
  Receive Date: 20180302
  Receipt Date: 20180302
  Transmission Date: 20180509
  Serious: No
  Sender: FDA-Public Use
  Company Number: US-009507513-1803USA000283

PATIENT
  Age: 77 Year
  Sex: Male

DRUGS (2)
  1. COZAAR [Suspect]
     Active Substance: LOSARTAN POTASSIUM
     Indication: HYPERTENSION
     Dosage: 50 MG, QD 1 TABLET DAILY
     Route: 048
     Dates: start: 201612, end: 201711
  2. COZAAR [Suspect]
     Active Substance: LOSARTAN POTASSIUM
     Dosage: 50 MG, QD 1 TABLET DAILY
     Route: 048
     Dates: start: 20180116

REACTIONS (4)
  - Rash pruritic [Not Recovered/Not Resolved]
  - Blood pressure abnormal [Unknown]
  - Rash [Recovered/Resolved]
  - Rash [Not Recovered/Not Resolved]

NARRATIVE: CASE EVENT DATE: 20180116
